FAERS Safety Report 19687706 (Version 1)
Quarter: 2021Q3

REPORT INFORMATION
  Report Type: Spontaneous
  Country: PL (occurrence: PL)
  Receive Date: 20210812
  Receipt Date: 20210812
  Transmission Date: 20211014
  Serious: Yes (Other)
  Sender: FDA-Public Use
  Company Number: PL-SUNPHARMA-2021RR-307442AA

PATIENT
  Age: 20 Year
  Sex: Female

DRUGS (14)
  1. PREDNISOLONE. [Suspect]
     Active Substance: PREDNISOLONE
     Dosage: 0.15 MILLIGRAM/KILOGRAM, DAILY
     Route: 065
  2. NALBUPHINE [Suspect]
     Active Substance: NALBUPHINE
     Indication: ANALGESIC THERAPY
     Dosage: UNK
     Route: 042
  3. IMIPENEM AND CILASTATIN [Suspect]
     Active Substance: CILASTATIN SODIUM\IMIPENEM
     Indication: PYODERMA GANGRENOSUM
     Dosage: UNK
  4. FLUCONAZOLE. [Suspect]
     Active Substance: FLUCONAZOLE
     Indication: PYODERMA GANGRENOSUM
     Dosage: UNK
     Route: 065
  5. CYCLOSPORINE. [Suspect]
     Active Substance: CYCLOSPORINE
     Dosage: 100 MILLIGRAM, DAILY (1.7 MG/KG)
     Route: 065
  6. CYCLOSPORINE. [Suspect]
     Active Substance: CYCLOSPORINE
     Indication: PYODERMA GANGRENOSUM
     Dosage: 4.6 MILLIGRAM/KILOGRAM, DAILY
     Route: 065
  7. FOLIC ACID. [Concomitant]
     Active Substance: FOLIC ACID
     Indication: PRODUCT USED FOR UNKNOWN INDICATION
     Dosage: UNK
     Route: 065
  8. DYDROGESTERONE [Concomitant]
     Active Substance: DYDROGESTERONE
     Indication: PRODUCT USED FOR UNKNOWN INDICATION
     Dosage: UNK
     Route: 065
  9. LEVOFLOXACIN. [Suspect]
     Active Substance: LEVOFLOXACIN
     Indication: PYODERMA GANGRENOSUM
     Dosage: UNK
     Route: 065
  10. PREDNISOLONE. [Suspect]
     Active Substance: PREDNISOLONE
     Indication: PYODERMA GANGRENOSUM
     Dosage: 0.6 MILLIGRAM/KILOGRAM, DAILY
     Route: 065
  11. PARACETAMOL [Suspect]
     Active Substance: ACETAMINOPHEN
     Indication: ANALGESIC THERAPY
     Dosage: HIGH DOSES
     Route: 065
  12. LINEZOLIDE [Suspect]
     Active Substance: LINEZOLID
     Indication: PYODERMA GANGRENOSUM
     Dosage: UNK
     Route: 065
  13. ORNIDAZOLE [Suspect]
     Active Substance: ORNIDAZOLE
     Indication: PYODERMA GANGRENOSUM
     Dosage: UNK
     Route: 065
  14. CYCLOSPORINE. [Suspect]
     Active Substance: CYCLOSPORINE
     Dosage: 5.4 MILLIGRAM/KILOGRAM, DAILY
     Route: 065

REACTIONS (3)
  - Drug ineffective [Unknown]
  - Exposure during pregnancy [Unknown]
  - Disease progression [Unknown]
